FAERS Safety Report 6128776-6 (Version None)
Quarter: 2009Q1

REPORT INFORMATION
  Report Type: 
  Country: None (occurrence: None)
  Receive Date: 20090320
  Receipt Date: 20090312
  Transmission Date: 20090719
  Serious: Yes (Other)
  Sender: FDA-Public Use
  Company Number: OSCN-NO-0903L-0148

PATIENT

DRUGS (2)
  1. OMNISCAN [Suspect]
     Indication: NASOPHARYNGEAL CANCER
     Dosage: 0.1 MMOL/KG, SINGLE DOSE
  2. OMNISCAN [Suspect]
     Indication: RENAL FAILURE ACUTE
     Dosage: 0.1 MMOL/KG, SINGLE DOSE

REACTIONS (1)
  - NEPHROGENIC SYSTEMIC FIBROSIS [None]
